FAERS Safety Report 8126491-0 (Version None)
Quarter: 2012Q1

REPORT INFORMATION
  Report Type: 
  Country: None (occurrence: None)
  Receive Date: 20120209
  Receipt Date: 20120201
  Transmission Date: 20120608
  Serious: Yes (Hospitalization, Other)
  Sender: FDA-Public Use
  Company Number: US-ASTRAZENECA-2011SE09863

PATIENT
  Age: 64 Year
  Sex: Female
  Weight: 62.6 kg

DRUGS (22)
  1. NEXIUM [Suspect]
     Indication: BARRETT'S OESOPHAGUS
     Route: 048
     Dates: end: 20110216
  2. FISH OIL [Concomitant]
  3. CARAFATE [Concomitant]
     Dosage: BEFORE MEALS AND AT BEDTIME
     Route: 048
  4. DIOVAN [Concomitant]
  5. THYROID TAB [Concomitant]
  6. CLONIDINE [Concomitant]
  7. HYDROCODONE BITARTRATE AND ACETAMINOPHEN [Concomitant]
     Dosage: 10/500 MILLIGRAM, ONE TABLET FOUR TIMES A DAY.
  8. IODINE [Concomitant]
  9. AMBIEN [Concomitant]
  10. COREG [Concomitant]
  11. ASPIRIN [Concomitant]
  12. LOVENOX [Concomitant]
     Dosage: 100 MILLIGRAM PER MILLILITER, 30 MILLIGRAM ONCE A DAY
  13. BENADRYL [Concomitant]
  14. CRESTOR [Suspect]
     Route: 048
  15. NEXIUM [Suspect]
     Route: 048
  16. MS CONTIN [Concomitant]
  17. TRAMADOL HCL [Concomitant]
  18. MAGNESIUM [Concomitant]
  19. NEURONTIN [Concomitant]
  20. NEXIUM [Suspect]
     Indication: GASTROOESOPHAGEAL REFLUX DISEASE
     Route: 048
     Dates: end: 20110216
  21. NEXIUM [Suspect]
     Route: 048
  22. SOMA [Concomitant]

REACTIONS (17)
  - PNEUMONIA ASPIRATION [None]
  - IRRITABLE BOWEL SYNDROME [None]
  - OFF LABEL USE [None]
  - PULMONARY OEDEMA [None]
  - ABNORMAL LOSS OF WEIGHT [None]
  - DEVICE OCCLUSION [None]
  - THROMBOSIS [None]
  - LIMB CRUSHING INJURY [None]
  - GASTROOESOPHAGEAL REFLUX DISEASE [None]
  - DIVERTICULUM [None]
  - OEDEMA PERIPHERAL [None]
  - MALAISE [None]
  - DRUG INTOLERANCE [None]
  - BRADYCARDIA [None]
  - CONSTIPATION [None]
  - DIARRHOEA [None]
  - DRUG DOSE OMISSION [None]
